FAERS Safety Report 15881311 (Version 1)
Quarter: 2019Q1

REPORT INFORMATION
  Report Type: Report from Study
  Country: US (occurrence: US)
  Receive Date: 20190128
  Receipt Date: 20190128
  Transmission Date: 20190417
  Serious: No
  Sender: FDA-Public Use
  Company Number: PHEH2019US004162

PATIENT
  Sex: Male

DRUGS (1)
  1. COSENTYX [Suspect]
     Active Substance: SECUKINUMAB
     Indication: PEMPHIGUS
     Dosage: 300 MG, Q4W
     Route: 058

REACTIONS (2)
  - Product use in unapproved indication [Unknown]
  - Anxiety [Unknown]
